FAERS Safety Report 4749949-0 (Version None)
Quarter: 2005Q3

REPORT INFORMATION
  Report Type: 
  Country: None (occurrence: None)
  Receive Date: 20050822
  Receipt Date: 20050309
  Transmission Date: 20060218
  Serious: Yes (Hospitalization, Disabling)
  Sender: FDA-Public Use
  Company Number: US-MERCK-0503USA01958

PATIENT
  Age: 77 Year
  Sex: Female
  Weight: 95 kg

DRUGS (20)
  1. GLUCOPHAGE [Concomitant]
     Indication: DIABETES MELLITUS
     Route: 065
  2. DIFLUCAN [Concomitant]
     Indication: ANTIFUNGAL PROPHYLAXIS
     Route: 065
  3. CIPROFLOXACIN HCL [Concomitant]
     Indication: INFECTION
     Route: 065
  4. XALATAN [Concomitant]
     Indication: GLAUCOMA
     Route: 065
  5. AMBIEN [Concomitant]
     Indication: INSOMNIA
     Route: 065
  6. ZITHROMAX [Concomitant]
     Indication: INFECTION
     Route: 065
  7. ATUSS DM [Concomitant]
     Indication: ANTITUSSIVE THERAPY
     Route: 065
  8. PROPOXYPHENE HYDROCHLORIDE [Concomitant]
     Indication: PAIN
     Route: 065
  9. OMNICEF [Concomitant]
     Indication: INFECTION
     Route: 065
  10. TRIMOX [Concomitant]
     Indication: INFECTION
     Route: 065
  11. VIOXX [Suspect]
     Indication: OSTEOARTHRITIS
     Route: 048
     Dates: start: 20011022, end: 20040918
  12. VIOXX [Suspect]
     Route: 048
     Dates: start: 20011022, end: 20040918
  13. HYZAAR [Concomitant]
     Route: 065
     Dates: start: 19930101
  14. COVERA-HS [Concomitant]
     Route: 065
     Dates: start: 19930101
  15. TOPROL-XL [Concomitant]
     Route: 065
     Dates: start: 19930101
  16. NORVASC [Concomitant]
     Route: 065
     Dates: start: 19930101
  17. ISOSORBIDE [Concomitant]
     Route: 065
     Dates: start: 19930101
  18. ACIPHEX [Concomitant]
     Route: 065
  19. CORGARD [Concomitant]
     Route: 065
  20. DARVOCET-N 100 [Concomitant]
     Route: 065

REACTIONS (8)
  - ANGINA PECTORIS [None]
  - ATRIAL FIBRILLATION [None]
  - BRADYCARDIA [None]
  - CHEST PAIN [None]
  - CORONARY ARTERY ATHEROSCLEROSIS [None]
  - DIZZINESS [None]
  - GASTROOESOPHAGEAL REFLUX DISEASE [None]
  - MYOCARDIAL INFARCTION [None]
